FAERS Safety Report 23139359 (Version 8)
Quarter: 2024Q4

REPORT INFORMATION
  Report Type: Spontaneous
  Country: FR (occurrence: FR)
  Receive Date: 20231102
  Receipt Date: 20241015
  Transmission Date: 20250114
  Serious: Yes (Death, Hospitalization, Other)
  Sender: ACCORD
  Company Number: FR-Accord-387323

PATIENT
  Age: 70 Year
  Sex: Male
  Weight: 61.0 kg

DRUGS (29)
  1. CARBOPLATIN [Suspect]
     Active Substance: CARBOPLATIN
     Indication: Squamous cell carcinoma of head and neck
     Dosage: 5 AUC, 1Q3W
     Route: 042
     Dates: start: 20230906, end: 20230906
  2. FLUOROURACIL [Suspect]
     Active Substance: FLUOROURACIL
     Indication: Squamous cell carcinoma of head and neck
     Dosage: 1000 MILLIGRAM/SQ METER/DAY D1-D4, 1Q3W
     Route: 042
     Dates: start: 20230906, end: 20230910
  3. SKENAN [Suspect]
     Active Substance: MORPHINE SULFATE
     Indication: Tumour pain
     Dosage: QD
     Route: 062
     Dates: start: 202308, end: 20230908
  4. PEMBROLIZUMAB [Concomitant]
     Active Substance: PEMBROLIZUMAB
     Indication: Squamous cell carcinoma of head and neck
     Dosage: 200 MILLIGRAM, 1Q3W
     Route: 042
     Dates: start: 20230906, end: 20230927
  5. ONDANSETRON [Concomitant]
     Active Substance: ONDANSETRON
     Dates: start: 20230906, end: 20230927
  6. METHYLPREDNISOLONE [Concomitant]
     Active Substance: METHYLPREDNISOLONE
     Dates: start: 20230906, end: 20230927
  7. ROSUVASTATIN [Concomitant]
     Active Substance: ROSUVASTATIN
  8. RAMIPRIL [Concomitant]
     Active Substance: RAMIPRIL
  9. LYRICA [Concomitant]
     Active Substance: PREGABALIN
  10. KARDEGIC [Concomitant]
     Active Substance: ASPIRIN DL-LYSINE
     Dates: end: 20231015
  11. LANTUS [Concomitant]
     Active Substance: INSULIN GLARGINE
     Dates: end: 20230907
  12. ACTRAPID [Concomitant]
     Active Substance: INSULIN HUMAN
  13. CREON [Concomitant]
     Active Substance: PANCRELIPASE AMYLASE\PANCRELIPASE LIPASE\PANCRELIPASE PROTEASE
  14. FENTANYL [Concomitant]
     Active Substance: FENTANYL
  15. DAFALGAN [Concomitant]
     Active Substance: ACETAMINOPHEN
  16. MORPHINE SULFATE [Concomitant]
     Active Substance: MORPHINE SULFATE
     Dates: start: 20230831
  17. TRANSIPEG [Concomitant]
     Dates: start: 20230831
  18. ZOMETA [Concomitant]
     Active Substance: ZOLEDRONIC ACID
     Dates: start: 20230908, end: 20230908
  19. RACECADOTRIL [Concomitant]
     Active Substance: RACECADOTRIL
     Dates: start: 20230914, end: 20230927
  20. PREGABALIN [Concomitant]
     Active Substance: PREGABALIN
     Dates: start: 20230905, end: 20230908
  21. POTASSIUM [Concomitant]
     Active Substance: POTASSIUM
     Dates: start: 20230911, end: 20231009
  22. PIPERACILLIN AND TAZOBACTAM [Concomitant]
     Active Substance: PIPERACILLIN SODIUM\TAZOBACTAM SODIUM
     Dates: start: 20230916, end: 20231004
  23. INSULIN ASPART [Concomitant]
     Active Substance: INSULIN ASPART
     Dates: start: 20230905, end: 20231013
  24. ISOPHANE INSULIN [Concomitant]
     Active Substance: INSULIN NOS
     Dates: start: 20230909, end: 20231015
  25. CEFAZOLIN SODIUM [Concomitant]
     Active Substance: CEFAZOLIN SODIUM
     Dates: start: 20231004, end: 20231017
  26. POTASSIUM CHLORIDE\SODIUM CHLORIDE [Concomitant]
     Active Substance: POTASSIUM CHLORIDE\SODIUM CHLORIDE
     Dates: start: 20230911, end: 20230913
  27. PHOCYTAN [Concomitant]
     Active Substance: .ALPHA.-GLUCOSE-1-PHOSPHATE DISODIUM TETRAHYDRATE
     Dates: start: 20230917, end: 20230921
  28. CARBOPLATIN [Suspect]
     Active Substance: CARBOPLATIN
     Indication: Squamous cell carcinoma of head and neck
     Dosage: 4 AUC, 1Q3W
     Route: 042
     Dates: start: 20230927, end: 20230927
  29. FLUOROURACIL [Suspect]
     Active Substance: FLUOROURACIL
     Indication: Squamous cell carcinoma of head and neck
     Dosage: 800 MILLIGRAM/SQ METER/DAY D1-D4, 1Q3W
     Route: 042
     Dates: start: 20230927, end: 20231001

REACTIONS (2)
  - General physical health deterioration [Fatal]
  - Depression [Not Recovered/Not Resolved]

NARRATIVE: CASE EVENT DATE: 20230909
